FAERS Safety Report 9914928 (Version 3)
Quarter: 2014Q2

REPORT INFORMATION
  Report Type: Spontaneous
  Country: US (occurrence: US)
  Receive Date: 20140220
  Receipt Date: 20140403
  Transmission Date: 20141212
  Serious: No
  Sender: FDA-Public Use
  Company Number: US-PFIZER INC-2014046493

PATIENT
  Age: 58 Year
  Sex: Female

DRUGS (1)
  1. CYTOMEL [Suspect]
     Indication: THYROID DISORDER
     Dosage: 50 UG, 1X/DAY
     Route: 048
     Dates: start: 2004

REACTIONS (2)
  - Drug ineffective [Unknown]
  - Product quality issue [Unknown]
